FAERS Safety Report 5356476-9 (Version None)
Quarter: 2007Q2

REPORT INFORMATION
  Report Type: 
  Country: None (occurrence: None)
  Receive Date: 20070530
  Receipt Date: 20070119
  Transmission Date: 20071010
  Serious: Yes (Other)
  Sender: FDA-Public Use
  Company Number: US200609006476

PATIENT
  Age: 31 Year
  Sex: Male
  Weight: 81.6 kg

DRUGS (5)
  1. ZYPREXA [Suspect]
     Dosage: SEE IMAGE
     Dates: start: 19980101, end: 19981201
  2. ZYPREXA [Suspect]
     Dosage: SEE IMAGE
     Dates: start: 19980101, end: 19990401
  3. ZYPREXA [Suspect]
     Dosage: SEE IMAGE
     Dates: start: 19990401, end: 20031101
  4. PROLIXIN [Concomitant]
  5. GEODON [Concomitant]

REACTIONS (5)
  - BLOOD CHOLESTEROL ABNORMAL [None]
  - DIABETES MELLITUS [None]
  - OBESITY [None]
  - PANCREATITIS [None]
  - PRESCRIBED OVERDOSE [None]
